FAERS Safety Report 16202920 (Version 2)
Quarter: 2019Q2

REPORT INFORMATION
  Report Type: Report from Study
  Country: US (occurrence: US)
  Receive Date: 20190416
  Receipt Date: 20190422
  Transmission Date: 20190711
  Serious: Yes (Other)
  Sender: FDA-Public Use
  Company Number: US-GILEAD-2019-0402488

PATIENT
  Age: 66 Year
  Sex: Female
  Weight: 139.23 kg

DRUGS (9)
  1. AMBRISENTAN [Suspect]
     Active Substance: AMBRISENTAN
     Indication: PULMONARY ARTERIAL HYPERTENSION
     Dosage: 5 MG, QD
     Route: 065
  2. IRON [Concomitant]
     Active Substance: IRON
  3. ZYLOPRIM [Concomitant]
     Active Substance: ALLOPURINOL
  4. VITAMIN D NOS [Concomitant]
     Active Substance: VITAMIN D NOS
  5. ATENOLOL. [Concomitant]
     Active Substance: ATENOLOL
     Dosage: 100 MG, QD
     Route: 048
  6. CLARITIN [Concomitant]
     Active Substance: LORATADINE
     Dosage: 10 MG, QD
     Route: 048
  7. ADCIRCA [Concomitant]
     Active Substance: TADALAFIL
  8. COUMADIN [Concomitant]
     Active Substance: WARFARIN SODIUM
  9. PROTONIX [OMEPRAZOLE] [Concomitant]
     Active Substance: OMEPRAZOLE
     Dosage: 40 MG, QD
     Route: 048

REACTIONS (2)
  - Diabetic nephropathy [Unknown]
  - Chronic kidney disease [Not Recovered/Not Resolved]

NARRATIVE: CASE EVENT DATE: 20190417
